FAERS Safety Report 15067727 (Version 1)
Quarter: 2018Q2

REPORT INFORMATION
  Report Type: Spontaneous
  Country: US (occurrence: US)
  Receive Date: 20180626
  Receipt Date: 20180626
  Transmission Date: 20180711
  Serious: No
  Sender: FDA-Public Use
  Company Number: US-SA-2017SA165481

PATIENT
  Age: 21 Year
  Sex: Male

DRUGS (4)
  1. ZOFRAN [ONDANSETRON] [Concomitant]
     Dosage: UNK UNK,UNK
     Route: 042
  2. FABRAZYME [Suspect]
     Active Substance: AGALSIDASE BETA
     Dosage: 85 MG,QOW
     Route: 041
     Dates: start: 20110418
  3. FABRAZYME [Suspect]
     Active Substance: AGALSIDASE BETA
     Dosage: 80 MG,QOW
     Route: 041
     Dates: start: 20150506, end: 2018
  4. BENADRYL [Concomitant]
     Active Substance: DIPHENHYDRAMINE HYDROCHLORIDE
     Dosage: UNK UNK,UNK
     Route: 042

REACTIONS (4)
  - Body temperature increased [Unknown]
  - Condition aggravated [Unknown]
  - Nausea [Unknown]
  - Tremor [Unknown]

NARRATIVE: CASE EVENT DATE: 20170826
